FAERS Safety Report 6714283-6 (Version None)
Quarter: 2010Q2

REPORT INFORMATION
  Report Type: 
  Country: None (occurrence: None)
  Receive Date: 20100506
  Receipt Date: 20100118
  Transmission Date: 20101027
  Serious: No
  Sender: FDA-Public Use
  Company Number: US-BAUSCH-2010BL000337

PATIENT
  Age: 55 Year
  Sex: Female

DRUGS (5)
  1. LOTEMAX [Suspect]
     Indication: CONJUNCTIVITIS ALLERGIC
     Route: 047
     Dates: start: 20091230, end: 20100118
  2. RESTASIS [Concomitant]
     Indication: DRY EYE
     Route: 047
     Dates: start: 20091201
  3. QUINAPRIL [Concomitant]
     Indication: HYPERTENSION
  4. WELLBUTRIN [Concomitant]
  5. PREVACID [Concomitant]
     Indication: GASTROOESOPHAGEAL REFLUX DISEASE

REACTIONS (1)
  - DRUG INEFFECTIVE [None]
